FAERS Safety Report 6939050-X (Version None)
Quarter: 2010Q3

REPORT INFORMATION
  Report Type: 
  Country: None (occurrence: None)
  Receive Date: 20100824
  Receipt Date: 20100819
  Transmission Date: 20110219
  Serious: Yes (Disabling, Other)
  Sender: FDA-Public Use
  Company Number: PR-MERCK-0805USA02787

PATIENT
  Age: 52 Year
  Sex: Male
  Weight: 70 kg

DRUGS (1)
  1. FOSAMAX [Suspect]
     Indication: OSTEOPENIA
     Route: 048
     Dates: start: 20050101, end: 20060510

REACTIONS (19)
  - ABSCESS [None]
  - BRONCHITIS [None]
  - BRONCHITIS CHRONIC [None]
  - COUGH [None]
  - ESSENTIAL HYPERTENSION [None]
  - GINGIVAL BLEEDING [None]
  - HEPATIC STEATOSIS [None]
  - HYPERLIPIDAEMIA [None]
  - IMPAIRED HEALING [None]
  - INFECTION [None]
  - INSOMNIA [None]
  - MUCOSAL ULCERATION [None]
  - NEPHROLITHIASIS [None]
  - NEURALGIA [None]
  - OSTEOMYELITIS [None]
  - OSTEONECROSIS OF JAW [None]
  - PAIN [None]
  - RHINITIS [None]
  - RHINITIS ALLERGIC [None]
